FAERS Safety Report 13113043 (Version 2)
Quarter: 2017Q1

REPORT INFORMATION
  Report Type: Spontaneous
  Country: PL (occurrence: PL)
  Receive Date: 20170113
  Receipt Date: 20170118
  Transmission Date: 20170428
  Serious: Yes (Other)
  Sender: FDA-Public Use
  Company Number: PL-TEVA-728062ISR

PATIENT
  Age: 39 Year
  Sex: Female

DRUGS (1)
  1. ISOTRETINOIN [Suspect]
     Active Substance: ISOTRETINOIN
     Dosage: 20 MG/KG DAILY;
     Route: 065

REACTIONS (5)
  - Erythema [Recovered/Resolved]
  - Conjunctival hyperaemia [Recovered/Resolved]
  - Meibomian gland dysfunction [Recovered/Resolved]
  - Skin exfoliation [Recovered/Resolved]
  - Keratoconus [Recovered/Resolved]
